FAERS Safety Report 9169174 (Version 2)
Quarter: 2013Q3

REPORT INFORMATION
  Report Type: Report from Study
  Country: JP (occurrence: JP)
  Receive Date: 20130318
  Receipt Date: 20130703
  Transmission Date: 20140515
  Serious: Yes (Death)
  Sender: FDA-Public Use
  Company Number: JP-UCBSA-080728

PATIENT
  Age: 61 Year
  Sex: Female
  Weight: 37 kg

DRUGS (4)
  1. E KEPPRA [Suspect]
     Indication: PARTIAL SEIZURES WITH SECONDARY GENERALISATION
     Route: 048
     Dates: start: 20120604, end: 20120720
  2. DEPAKENE-R [Concomitant]
     Indication: PARTIAL SEIZURES WITH SECONDARY GENERALISATION
     Dosage: TOTAL DAILY DOSE: 800 MG
     Route: 048
     Dates: start: 20120219, end: 20120703
  3. DEPAKENE [Concomitant]
     Indication: PARTIAL SEIZURES WITH SECONDARY GENERALISATION
     Dosage: TOTAL DAILY DOSE: 800 MG
     Route: 048
     Dates: start: 20120704, end: 20120720
  4. PREDNISOLONE [Concomitant]
     Indication: BRAIN OEDEMA
     Dosage: TOTAL DAILY DOSE: 10 MG
     Route: 048
     Dates: end: 20120720

REACTIONS (2)
  - Breast cancer [Fatal]
  - Brain neoplasm [Fatal]
